FAERS Safety Report 6914476-9 (Version None)
Quarter: 2010Q3

REPORT INFORMATION
  Report Type: 
  Country: None (occurrence: None)
  Receive Date: 20100809
  Receipt Date: 20100730
  Transmission Date: 20110219
  Serious: Yes (Other)
  Sender: FDA-Public Use
  Company Number: DE-PFIZER INC-2010095726

PATIENT
  Sex: Male

DRUGS (3)
  1. LIPITOR [Suspect]
     Dosage: 10 MG, UNK
     Route: 048
  2. MARCUMAR [Concomitant]
  3. DECORTIN [Concomitant]
     Indication: MUSCULOSKELETAL PAIN

REACTIONS (2)
  - BALANCE DISORDER [None]
  - SPEECH DISORDER [None]
